FAERS Safety Report 15680274 (Version 3)
Quarter: 2019Q2

REPORT INFORMATION
  Report Type: Spontaneous
  Country: US (occurrence: US)
  Receive Date: 20181203
  Receipt Date: 20190415
  Transmission Date: 20190711
  Serious: Yes (Other)
  Sender: FDA-Public Use
  Company Number: US-PFIZER INC-2018488371

PATIENT
  Age: 79 Year
  Sex: Female
  Weight: 74 kg

DRUGS (3)
  1. TOVIAZ [Suspect]
     Active Substance: FESOTERODINE FUMARATE
     Indication: BLADDER DISCOMFORT
     Dosage: 8 MG, DAILY
     Route: 048
     Dates: start: 2016
  2. CARVEDILOL. [Concomitant]
     Active Substance: CARVEDILOL
     Indication: CARDIAC DISORDER
     Dosage: 6.5 MG, 2X/DAY (ONCE IN THE MORNING, ONCE AT NIGHT)
     Route: 048
     Dates: start: 2013
  3. TOVIAZ [Suspect]
     Active Substance: FESOTERODINE FUMARATE
     Dosage: 8 MG, DAILY
     Route: 048
     Dates: start: 2017

REACTIONS (2)
  - Fall [Recovered/Resolved]
  - Parkinson^s disease [Not Recovered/Not Resolved]

NARRATIVE: CASE EVENT DATE: 201709
